FAERS Safety Report 10180007 (Version 1)
Quarter: 2014Q2

REPORT INFORMATION
  Report Type: Spontaneous
  Country: US (occurrence: US)
  Receive Date: 20140519
  Receipt Date: 20140519
  Transmission Date: 20141212
  Serious: Yes (Other)
  Sender: FDA-Public Use
  Company Number: US-BRISTOL-MYERS SQUIBB COMPANY-19932557

PATIENT
  Age: 50 Year
  Sex: Male
  Weight: 71.2 kg

DRUGS (1)
  1. BARACLUDE [Suspect]

REACTIONS (1)
  - Viral load increased [Unknown]
